FAERS Safety Report 22320961 (Version 2)
Quarter: 2023Q2

REPORT INFORMATION
  Report Type: Spontaneous
  Country: US (occurrence: US)
  Receive Date: 20230515
  Receipt Date: 20230517
  Transmission Date: 20230722
  Serious: Yes (Other)
  Sender: FDA-Public Use
  Company Number: US-BAXTER-2023BAX021501

PATIENT
  Age: 92 Year
  Sex: Female
  Weight: 62.5 kg

DRUGS (8)
  1. NEXTERONE [Suspect]
     Active Substance: AMIODARONE HYDROCHLORIDE
     Dosage: 150 MG AT UNSPECIFIED FREQUENCY AT 03:27, BAG VOLUME: 200 ML, NEXTERONE 360 MG/200 ML
     Route: 040
  2. NEXTERONE [Suspect]
     Active Substance: AMIODARONE HYDROCHLORIDE
     Dosage: 1 MG/ML INFUSION STARTED AT 03:41, BAG VOLUME: 200 ML, NEXTERONE 360 MG/200 ML
     Route: 050
  3. CEFTRIAXONE [Suspect]
     Active Substance: CEFTRIAXONE
     Dosage: 1 GRAM
     Route: 042
  4. CEFEPIME [Suspect]
     Active Substance: CEFEPIME HYDROCHLORIDE
     Dosage: 1 GRAM
     Route: 042
  5. SODIUM CHLORIDE [Suspect]
     Active Substance: SODIUM CHLORIDE
     Dosage: 2500 ML, NS BOLUS
     Route: 050
  6. DILTIAZEM [Suspect]
     Active Substance: DILTIAZEM
     Dosage: UNK
     Route: 042
  7. DILTIAZEM [Suspect]
     Active Substance: DILTIAZEM
     Dosage: RATE 7.5 MG/HOUR (INFUSION)
     Route: 042
  8. ELIQUIS [Suspect]
     Active Substance: APIXABAN
     Dosage: 2.5 MG
     Route: 065

REACTIONS (6)
  - Atrial fibrillation [Unknown]
  - Dyspnoea [Unknown]
  - Condition aggravated [Unknown]
  - Asthenia [Unknown]
  - Drug ineffective [Unknown]
  - Palpitations [Unknown]
